FAERS Safety Report 11777569 (Version 2)
Quarter: 2016Q1

REPORT INFORMATION
  Report Type: Other
  Country: US (occurrence: US)
  Receive Date: 20151125
  Receipt Date: 20160126
  Transmission Date: 20160525
  Serious: Yes (Other)
  Sender: FDA-Public Use
  Company Number: US-ACORDA-ACO_119479_2015

PATIENT
  Sex: Female

DRUGS (9)
  1. AMPYRA [Suspect]
     Active Substance: DALFAMPRIDINE
     Dosage: 10 MG, Q 12 HRS
     Route: 048
     Dates: end: 201512
  2. AMPYRA [Suspect]
     Active Substance: DALFAMPRIDINE
     Indication: GAIT DISTURBANCE
     Dosage: 10 MG, Q 12 HRS
     Route: 048
     Dates: start: 201304
  3. NATURAL REMEDY (NOS) [Concomitant]
     Dosage: UNK
  4. INJECTABLE MS MEDICATIONS [Concomitant]
     Indication: MULTIPLE SCLEROSIS
     Dosage: UNK
     Route: 051
  5. HYDROXYUREA. [Concomitant]
     Active Substance: HYDROXYUREA
     Indication: PRODUCT USED FOR UNKNOWN INDICATION
     Dosage: 500 MG, QD
     Route: 065
  6. AMPYRA [Suspect]
     Active Substance: DALFAMPRIDINE
     Dosage: 10 MG, Q 12 HRS
     Route: 048
     Dates: start: 201312
  7. AMPYRA [Suspect]
     Active Substance: DALFAMPRIDINE
     Dosage: 10 MG, QD
     Route: 048
  8. BACLOFEN. [Concomitant]
     Active Substance: BACLOFEN
     Indication: PRODUCT USED FOR UNKNOWN INDICATION
     Dosage: 10 MG, EVERY 4 HRS
     Route: 065
  9. ASPIRIN. [Concomitant]
     Active Substance: ASPIRIN
     Indication: PRODUCT USED FOR UNKNOWN INDICATION
     Dosage: 81 MG, UNK

REACTIONS (25)
  - Pollakiuria [Recovered/Resolved]
  - Feeling hot [Recovered/Resolved]
  - Polycythaemia vera [Not Recovered/Not Resolved]
  - Road traffic accident [Unknown]
  - Hand fracture [Unknown]
  - Joint swelling [Unknown]
  - Constipation [Unknown]
  - Back pain [Unknown]
  - Joint injury [Unknown]
  - Micturition urgency [Not Recovered/Not Resolved]
  - Paraesthesia [Unknown]
  - Insomnia [Unknown]
  - Therapy cessation [Unknown]
  - Balance disorder [Unknown]
  - Urinary incontinence [Unknown]
  - Limb injury [Unknown]
  - Arthritis infective [Unknown]
  - Drug hypersensitivity [Unknown]
  - Abasia [Unknown]
  - Osteoporosis [Unknown]
  - Fatigue [Recovering/Resolving]
  - Condition aggravated [Not Recovered/Not Resolved]
  - Hypoaesthesia [Unknown]
  - Muscular weakness [Recovering/Resolving]
  - Urinary tract infection [Not Recovered/Not Resolved]

NARRATIVE: CASE EVENT DATE: 2015
